FAERS Safety Report 8534974 (Version 7)
Quarter: 2012Q4

REPORT INFORMATION
  Report Type: Report from Study
  Country: DE (occurrence: DE)
  Receive Date: 20120427
  Receipt Date: 20121210
  Transmission Date: 20130627
  Serious: Yes (Hospitalization)
  Sender: FDA-Public Use
  Company Number: PHHO2012DE005854

PATIENT
  Age: 15 Year
  Sex: Female
  Weight: 62.2 kg

DRUGS (7)
  1. IBUPROFEN [Suspect]
     Dosage: 800 mg, (2 x1 tabl, as needed)
     Route: 048
     Dates: start: 20100615, end: 20120412
  2. ACZ885 [Suspect]
     Indication: JUVENILE ARTHRITIS
     Dosage: 249 mg, UNK
     Dates: start: 20100803
  3. ETANERCEPT [Suspect]
     Dosage: UNK
     Dates: start: 20050104, end: 20060509
  4. MTX [Suspect]
     Indication: JUVENILE ARTHRITIS
     Dosage: 15 mg, QW
     Route: 048
     Dates: start: 20100615
  5. OMEPRAZOLE [Concomitant]
     Indication: GASTRITIS
     Dosage: 20 mg, BID
     Route: 048
     Dates: start: 20100615, end: 20120412
  6. PANTOZOL [Concomitant]
     Indication: GASTRITIS
     Dosage: 20 mg, QD
     Route: 048
     Dates: start: 20120412
  7. PREDNISOLONE [Concomitant]
     Dosage: UNK

REACTIONS (5)
  - Juvenile idiopathic arthritis [Unknown]
  - Drug reaction with eosinophilia and systemic symptoms [Recovered/Resolved]
  - Rash [Recovered/Resolved]
  - Pain [Recovered/Resolved]
  - Condition aggravated [Recovered/Resolved]
